FAERS Safety Report 19615010 (Version 6)
Quarter: 2022Q1

REPORT INFORMATION
  Report Type: Report from Study
  Country: CA (occurrence: CA)
  Receive Date: 20210727
  Receipt Date: 20220223
  Transmission Date: 20220424
  Serious: Yes (Hospitalization, Other)
  Sender: FDA-Public Use
  Company Number: CA-TAKEDA-2021TUS046576

PATIENT
  Age: 55 Year
  Sex: Male

DRUGS (10)
  1. VEDOLIZUMAB [Suspect]
     Active Substance: VEDOLIZUMAB
     Indication: Colitis ulcerative
     Dosage: 300 MILLIGRAM
     Route: 042
     Dates: start: 20201201
  2. VEDOLIZUMAB [Suspect]
     Active Substance: VEDOLIZUMAB
     Dosage: 300 MILLIGRAM, Q4WEEKS
     Route: 042
     Dates: start: 20210329
  3. VEDOLIZUMAB [Suspect]
     Active Substance: VEDOLIZUMAB
     Dosage: 300 MILLIGRAM, Q4WEEKS
     Route: 042
  4. VEDOLIZUMAB [Suspect]
     Active Substance: VEDOLIZUMAB
     Dosage: 300 MILLIGRAM, Q4WEEKS
     Route: 042
  5. SERTRALINE [Concomitant]
     Active Substance: SERTRALINE HYDROCHLORIDE
     Indication: Post-traumatic stress disorder
     Dosage: UNK
  6. TEMAZEPAM [Concomitant]
     Active Substance: TEMAZEPAM
     Indication: Post-traumatic stress disorder
     Dosage: UNK
  7. RIFAXIMIN [Concomitant]
     Active Substance: RIFAXIMIN
     Indication: Irritable bowel syndrome
     Dosage: UNK
  8. CLOTRIMAZOLE [Concomitant]
     Active Substance: CLOTRIMAZOLE
     Indication: Antifungal treatment
     Dosage: UNK
  9. OXYCODONE [Concomitant]
     Active Substance: OXYCODONE
     Indication: Pain
     Dosage: UNK
  10. IMODIUM [Concomitant]
     Active Substance: LOPERAMIDE HYDROCHLORIDE
     Dosage: UNK UNK, QD

REACTIONS (3)
  - Renal cancer recurrent [Recovering/Resolving]
  - Abdominal hernia [Not Recovered/Not Resolved]
  - Off label use [Unknown]

NARRATIVE: CASE EVENT DATE: 20210329
